FAERS Safety Report 4730774-1 (Version None)
Quarter: 2005Q3

REPORT INFORMATION
  Report Type: 
  Country: None (occurrence: None)
  Receive Date: 20050725
  Receipt Date: 20050515
  Transmission Date: 20060218
  Serious: No
  Sender: FDA-Public Use
  Company Number: USA050598300

PATIENT
  Age: 69 Year
  Sex: Female

DRUGS (1)
  1. STRATTERA [Suspect]

REACTIONS (3)
  - NAUSEA [None]
  - NERVOUSNESS [None]
  - STOMACH DISCOMFORT [None]
